FAERS Safety Report 8834876 (Version 2)
Quarter: 2013Q1

REPORT INFORMATION
  Report Type: Report from Study
  Country: DK (occurrence: DK)
  Receive Date: 20121011
  Receipt Date: 20130212
  Transmission Date: 20140127
  Serious: Yes (Hospitalization)
  Sender: FDA-Public Use
  Company Number: DK-BIOGENIDEC-2012BI043484

PATIENT
  Age: 50 Year
  Sex: Female

DRUGS (8)
  1. TYSABRI [Suspect]
     Indication: MULTIPLE SCLEROSIS
     Route: 042
     Dates: start: 20070906
  2. ANTIDEPRESSANTS [Concomitant]
  3. PREGABALIN [Concomitant]
     Indication: PAIN PROPHYLAXIS
  4. HYPNOTICS [Concomitant]
  5. ESCITALOPRAM [Concomitant]
     Indication: DEPRESSION
  6. METOCLOPRAMIDE [Concomitant]
     Indication: NAUSEA
     Route: 048
     Dates: start: 20111127, end: 20111128
  7. PARACETAMOL [Concomitant]
     Indication: PAIN
     Route: 048
     Dates: start: 20111127
  8. MECILLINAM [Concomitant]
     Indication: CYSTITIS
     Route: 048
     Dates: start: 20111127, end: 20111130

REACTIONS (1)
  - Vertigo positional [Recovered/Resolved]
